FAERS Safety Report 21382649 (Version 2)
Quarter: 2022Q4

REPORT INFORMATION
  Report Type: Report from Study
  Country: PL (occurrence: None)
  Receive Date: 20220927
  Receipt Date: 20221005
  Transmission Date: 20230113
  Serious: Yes (Death)
  Sender: FDA-Public Use
  Company Number: PL-ROCHE-3186175

PATIENT
  Age: 76 Year
  Sex: Male
  Weight: 71 kg

DRUGS (21)
  1. ATEZOLIZUMAB [Suspect]
     Active Substance: ATEZOLIZUMAB
     Indication: Metastatic renal cell carcinoma
     Route: 041
     Dates: start: 20210309
  2. CABOZANTINIB [Suspect]
     Active Substance: CABOZANTINIB
     Indication: Metastatic renal cell carcinoma
     Dosage: (THREE 20-MG TABLETS) ADMINISTERED ORALLY ONCE DAILY.
     Route: 048
     Dates: start: 20210309
  3. ZOFENOPRIL [Concomitant]
     Active Substance: ZOFENOPRIL
     Indication: Hypertension
     Route: 048
     Dates: start: 2018
  4. TRIFAS [Concomitant]
     Indication: Hypertension
     Route: 048
     Dates: start: 2018
  5. AMLOPIN [Concomitant]
     Indication: Hypertension
     Route: 048
     Dates: start: 2018
  6. FLUTICASONE PROPIONATE [Concomitant]
     Active Substance: FLUTICASONE PROPIONATE
     Indication: Chronic obstructive pulmonary disease
     Route: 048
     Dates: start: 2014
  7. THIOCODIN (POLAND) [Concomitant]
     Indication: Cough
     Route: 048
     Dates: start: 20211115
  8. EUTHYROX [Concomitant]
     Active Substance: LEVOTHYROXINE SODIUM
     Indication: Blood thyroid stimulating hormone increased
     Route: 048
     Dates: start: 20211225
  9. SPORANOX [Concomitant]
     Active Substance: ITRACONAZOLE
     Indication: Fungal infection
     Route: 048
     Dates: start: 20220414
  10. OLODATEROL HYDROCHLORIDE\TIOTROPIUM BROMIDE MONOHYDRATE [Concomitant]
     Active Substance: OLODATEROL HYDROCHLORIDE\TIOTROPIUM BROMIDE MONOHYDRATE
     Indication: Pneumonia fungal
     Dosage: 1 INHALATION
     Route: 055
  11. POTASSIUM CHLORIDE [Concomitant]
     Active Substance: POTASSIUM CHLORIDE
     Indication: Prophylaxis
     Route: 048
  12. ENOXAPARIN SODIUM [Concomitant]
     Active Substance: ENOXAPARIN SODIUM
     Indication: Prophylaxis
     Route: 058
  13. ETHAMSYLATE [Concomitant]
     Active Substance: ETHAMSYLATE
     Indication: Prophylaxis
     Dosage: 1 AMPULE
     Route: 042
  14. ARGOSULFAN [Concomitant]
     Indication: Prophylaxis
     Route: 062
  15. PROBIOTICS NOS [Concomitant]
     Active Substance: PROBIOTICS NOS
     Indication: Prophylaxis
     Route: 048
  16. PANTOPRAZOLE [Concomitant]
     Active Substance: PANTOPRAZOLE
     Indication: Prophylaxis
     Route: 048
  17. ASPAFAR [Concomitant]
     Indication: Prophylaxis
     Route: 048
  18. ZAFIRON [Concomitant]
     Indication: Prophylaxis
     Route: 048
  19. MODERNA COVID-19 VACCINE [Concomitant]
     Active Substance: ELASOMERAN
     Dates: start: 202111
  20. MODERNA COVID-19 VACCINE [Concomitant]
     Active Substance: ELASOMERAN
     Dates: start: 20210310
  21. MODERNA COVID-19 VACCINE [Concomitant]
     Active Substance: ELASOMERAN
     Dates: start: 20210413

REACTIONS (1)
  - Death [Fatal]

NARRATIVE: CASE EVENT DATE: 20220808
